FAERS Safety Report 20671878 (Version 1)
Quarter: 2022Q2

REPORT INFORMATION
  Report Type: Spontaneous
  Country: US (occurrence: US)
  Receive Date: 20220405
  Receipt Date: 20220405
  Transmission Date: 20220721
  Serious: Yes (Hospitalization, Other)
  Sender: FDA-Public Use
  Company Number: US-BRISTOL-MYERS SQUIBB COMPANY-2022-013106

PATIENT
  Age: 87 Year
  Sex: Male

DRUGS (33)
  1. POMALYST [Suspect]
     Active Substance: POMALIDOMIDE
     Indication: Plasma cell myeloma
     Route: 048
     Dates: start: 20210321
  2. POMALYST [Suspect]
     Active Substance: POMALIDOMIDE
     Dosage: 1 CAPSULE BY MOUTH EVERY DAY FOR 14 DAYS ON ND 14 DAYS OFF
     Route: 048
     Dates: start: 20210903
  3. POMALYST [Suspect]
     Active Substance: POMALIDOMIDE
     Dosage: 1 CAPSULE BY MOUTH EVERY DAY FOR 14 DAYS FOLLOWED  ON ND 14 DAYS REST
     Route: 048
     Dates: start: 20210806
  4. POMALYST [Suspect]
     Active Substance: POMALIDOMIDE
     Dosage: 1 CAPSULE BY MOUTH EVERY DAY FOR 14 DAYS ON ND 14 DAYS OFF
     Route: 048
     Dates: start: 20211004
  5. POMALYST [Suspect]
     Active Substance: POMALIDOMIDE
     Dosage: 1 CAPSULE BY MOUTH EVERY DAY FOR 14 DAYS FOLLOWED  ON ND 14 DAYS REST
     Route: 048
     Dates: start: 20210709
  6. POMALYST [Suspect]
     Active Substance: POMALIDOMIDE
     Dosage: 1 CAPSULE BY MOUTH EVERY DAY FOR 14 DAYS FOLLOWED  ON ND 14 DAYS REST
     Route: 048
     Dates: start: 20211029
  7. POMALYST [Suspect]
     Active Substance: POMALIDOMIDE
     Dosage: 1 CAPSULE BY MOUTH EVERY DAY FOR 14 DAYS FOLLOWED  ON ND 14 DAYS REST
     Route: 048
     Dates: start: 20211222
  8. POMALYST [Suspect]
     Active Substance: POMALIDOMIDE
     Dosage: 1 CAPSULE BY MOUTH EVERY DAY FOR 14 DAYS FOLLOWED  ON ND 14 DAYS REST
     Route: 048
     Dates: start: 20210610
  9. POMALYST [Suspect]
     Active Substance: POMALIDOMIDE
     Dosage: 1 CAPSULE BY MOUTH EVERY DAY FOR 14 DAYS THEN BREAK FOR 14 DAYS
     Route: 048
     Dates: start: 20211126
  10. POMALYST [Suspect]
     Active Substance: POMALIDOMIDE
     Dosage: TAKE 1 CAPSULE BY MOUTH EVERY DAY FOR 21 DAYS AND REST FOR 7 DAYS
     Route: 048
     Dates: start: 20201009
  11. POMALYST [Suspect]
     Active Substance: POMALIDOMIDE
     Dosage: 1 CAPSULE BY MOUTH EVERY DAY FOR 14 DAYS FOLLOWED BY 14 DAYS OFF
     Route: 048
     Dates: start: 20211201
  12. REVLIMID [Concomitant]
     Active Substance: LENALIDOMIDE
     Indication: Product used for unknown indication
     Dosage: TAKE ONE CAPSULE BY DAILY FOR 14DAYS FOLLOWED BY 14 DAYS OFF
     Route: 048
     Dates: start: 20200917
  13. ACYCLOVIR [Concomitant]
     Active Substance: ACYCLOVIR
     Indication: Herpes zoster
     Route: 048
     Dates: start: 20220205
  14. CEPHALEXIN [Concomitant]
     Active Substance: CEPHALEXIN
     Indication: Product used for unknown indication
     Dosage: TAKE ONE CAPSULE BY MOUTH ORAL 4 TIMES DAILY FOR 6 DAYS
     Route: 048
     Dates: start: 20220217
  15. CEPHALEXIN [Concomitant]
     Active Substance: CEPHALEXIN
     Indication: Product used for unknown indication
     Dosage: TAKE ONE CAPSULE BY MOUTH ORAL EVERY 6 HOURS FOR 7 DAYS
     Route: 048
     Dates: start: 20220211
  16. DEXAMETHASONE [Concomitant]
     Active Substance: DEXAMETHASONE
     Indication: Product used for unknown indication
     Dosage: TAKE ONE TABLET BY MOUTH DAILY FOR 9HOURS
     Route: 048
     Dates: start: 20211231
  17. ATROPINE\DIPHENOXYLATE [Concomitant]
     Active Substance: ATROPINE\DIPHENOXYLATE
     Indication: Product used for unknown indication
     Dosage: TAKE ONE TABLET BY MOUTH TWICE DAILY
     Route: 048
     Dates: start: 20210614
  18. ATROPINE\DIPHENOXYLATE [Concomitant]
     Active Substance: ATROPINE\DIPHENOXYLATE
     Indication: Diarrhoea
     Dosage: TAKE ONE TABLET BY MOUTH TWICE DAILY AS NEEDED FOR DIARRHOEA
     Route: 048
     Dates: start: 20220125
  19. DOCUSATE SODIUM [Concomitant]
     Active Substance: DOCUSATE SODIUM
     Indication: Product used for unknown indication
     Dosage: TAKE ONE CAPSULE BY MOUTH DAILY WHILE TAKING NORCO
     Route: 048
     Dates: start: 20220217
  20. FERROUS SULFATE [Concomitant]
     Active Substance: FERROUS SULFATE
     Indication: Product used for unknown indication
     Dosage: (5GR)TABLETS, TAKE ONE TABLET BY MOUTH DAILY BEFORE BREAKFAST
     Route: 048
     Dates: start: 20220217
  21. FUROSEMIDE [Concomitant]
     Active Substance: FUROSEMIDE
     Indication: Product used for unknown indication
     Dosage: TAKE ONE TABLET BY MOUTH DAILY
     Route: 048
     Dates: start: 20220125
  22. FUROSEMIDE [Concomitant]
     Active Substance: FUROSEMIDE
     Indication: Product used for unknown indication
     Dosage: TAKE ONE TABLET BY MOUTH DAILY
     Route: 048
     Dates: start: 20220125
  23. ACETAMINOPHEN\HYDROCODONE [Concomitant]
     Active Substance: ACETAMINOPHEN\HYDROCODONE
     Indication: Pain
     Dosage: 5 TO 325 TB, TAKE 1 TABLET BY MOUTH EVERY 6 HOURS FOR  UP TO 3 DAYS AS NEEDED FOR PAIN MAX DAILY AMO
     Route: 048
     Dates: start: 20220217
  24. MUPIROCIN [Concomitant]
     Active Substance: MUPIROCIN
     Indication: Product used for unknown indication
     Dosage: 2% OINTMENT 22 GM APPLIED TO OPEN WOUND ON TOE DAILY AS INSTRUCTED
     Dates: start: 20220217
  25. potassium chloride micro [Concomitant]
     Indication: Product used for unknown indication
     Dosage: 10MEQ ER TAB TAKE 1 TABLET BY MOUTH DAILY WITH LASIX
     Route: 048
     Dates: start: 20211129
  26. potassium chloride micro [Concomitant]
     Indication: Product used for unknown indication
     Dosage: 10MEQ ER TAB TAKE 1 TABLET BY MOUTH DAILY WITH LASIX
     Route: 048
     Dates: start: 20210303
  27. PREGABALIN [Concomitant]
     Active Substance: PREGABALIN
     Indication: Product used for unknown indication
     Dosage: 2 CAPSULES BY MOUTH TWICE DAILY
     Route: 048
  28. TAMSULOSIN [Concomitant]
     Active Substance: TAMSULOSIN
     Indication: Product used for unknown indication
     Dosage: TAKE ONE CAPSULE BY MOUTH DAILY
     Route: 048
     Dates: start: 20220105
  29. BENADRYL [Concomitant]
     Active Substance: DIPHENHYDRAMINE HYDROCHLORIDE
     Indication: Product used for unknown indication
     Route: 048
  30. DEXAMETHASONE [Concomitant]
     Active Substance: DEXAMETHASONE
     Indication: Product used for unknown indication
     Route: 048
  31. EMPLICITI [Concomitant]
     Active Substance: ELOTUZUMAB
     Indication: Product used for unknown indication
     Dosage: INJECTION 1 VIAL
  32. FOLIC ACID [Concomitant]
     Active Substance: FOLIC ACID
     Indication: Product used for unknown indication
     Route: 048
  33. LOMOTIL [Concomitant]
     Active Substance: ATROPINE SULFATE\DIPHENOXYLATE HYDROCHLORIDE
     Indication: Product used for unknown indication
     Route: 048

REACTIONS (1)
  - Cellulitis [Unknown]

NARRATIVE: CASE EVENT DATE: 20220310
